FAERS Safety Report 21616303 (Version 2)
Quarter: 2022Q4

REPORT INFORMATION
  Report Type: Spontaneous
  Country: AU (occurrence: AU)
  Receive Date: 20221118
  Receipt Date: 20221124
  Transmission Date: 20230113
  Serious: Yes (Death, Life-Threatening, Hospitalization, Other)
  Sender: FDA-Public Use
  Company Number: AU-009507513-2211AUS005329

PATIENT
  Age: 16 Year
  Sex: Male
  Weight: 57 kg

DRUGS (5)
  1. KEYTRUDA [Suspect]
     Active Substance: PEMBROLIZUMAB
     Indication: Cancer with a high tumour mutational burden
     Dosage: EVERY 4 WEEKS, IV
     Route: 042
     Dates: start: 2022, end: 2022
  2. HYDROMORPHONE [Concomitant]
     Active Substance: HYDROMORPHONE
     Indication: Symptomatic treatment
     Dosage: DOSE VARIABLE
     Route: 058
     Dates: start: 20221108
  3. MIDAZOLAM [Concomitant]
     Active Substance: MIDAZOLAM
     Indication: Symptomatic treatment
     Dosage: DOSE VARIBLE
     Route: 058
     Dates: start: 20221108
  4. HALOPERIDOL [Concomitant]
     Active Substance: HALOPERIDOL
     Indication: Symptomatic treatment
     Dosage: DOSE VARIABLE
     Route: 058
     Dates: start: 20221108
  5. METHYLPREDNISOLONE [Concomitant]
     Active Substance: METHYLPREDNISOLONE
     Indication: Symptomatic treatment
     Dosage: 60 MILLIGRAM
     Route: 042
     Dates: start: 20221109

REACTIONS (5)
  - Hepatic failure [Fatal]
  - Gastrointestinal obstruction [Fatal]
  - Malignant neoplasm progression [Fatal]
  - Pain [Fatal]
  - Product use issue [Unknown]

NARRATIVE: CASE EVENT DATE: 20220101
